FAERS Safety Report 4880433-X (Version None)
Quarter: 2005Q4

REPORT INFORMATION
  Report Type: 
  Country: None (occurrence: None)
  Receive Date: 20051223
  Receipt Date: 20051128
  Transmission Date: 20060501
  Serious: No
  Sender: FDA-Public Use
  Company Number: 05P-163-0318051-00

PATIENT
  Age: 58 Year
  Sex: Female
  Weight: 91 kg

DRUGS (11)
  1. HUMIRA [Suspect]
     Indication: RHEUMATOID ARTHRITIS
     Dosage: 40 MG, 1 IN 2 WK, SUBCUTANEOUS
     Route: 058
     Dates: start: 20050101, end: 20051125
  2. DURAGESIC-75 [Concomitant]
  3. PREDNISONE [Concomitant]
  4. LOSARTAN POTASSIUM [Concomitant]
  5. LEVOTHYROXINE SODIUM [Concomitant]
  6. ATORVASTATIN CALCIUM [Concomitant]
  7. DYAZIDE [Concomitant]
  8. CLOPIDOGREL BISULFATE [Concomitant]
  9. ESTROGENS CONJUGATED [Concomitant]
  10. FOLIC ACID [Concomitant]
  11. METHOTREXATE [Concomitant]

REACTIONS (4)
  - BURNING SENSATION [None]
  - OEDEMA PERIPHERAL [None]
  - PAIN IN EXTREMITY [None]
  - SENSORY LOSS [None]
